FAERS Safety Report 4429793-4 (Version None)
Quarter: 2004Q3

REPORT INFORMATION
  Report Type: 
  Country: None (occurrence: None)
  Receive Date: 20040817
  Receipt Date: 20040817
  Transmission Date: 20050211
  Serious: Yes (Hospitalization)
  Sender: FDA-Public Use
  Company Number: None

PATIENT
  Age: 57 Year
  Sex: Male
  Weight: 70.7 kg

DRUGS (6)
  1. ZOMETA [Suspect]
     Indication: PROSTATE CANCER
     Dosage: 4 MG D2 IV
     Route: 042
     Dates: start: 20040220, end: 20040804
  2. DOCETAXEL [Suspect]
     Indication: PROSTATE CANCER
     Dosage: 70MG/M2 D2 IV
     Route: 042
     Dates: start: 20040220, end: 20040804
  3. ESTRAMUSTINE [Suspect]
     Indication: PROSTATE CANCER
     Dosage: 280 MG TID D1-3
     Dates: start: 20040309, end: 20040804
  4. DECADRON [Concomitant]
  5. TYLENOL [Concomitant]
  6. LUPRON [Concomitant]

REACTIONS (5)
  - DEEP VEIN THROMBOSIS [None]
  - HAEMATOCRIT DECREASED [None]
  - HAEMOGLOBIN DECREASED [None]
  - INTERNATIONAL NORMALISED RATIO DECREASED [None]
  - PLATELET COUNT DECREASED [None]
